FAERS Safety Report 7023629-3 (Version None)
Quarter: 2010Q3

REPORT INFORMATION
  Report Type: 
  Country: None (occurrence: None)
  Receive Date: 20100930
  Receipt Date: 20100930
  Transmission Date: 20110219
  Serious: Yes (Other)
  Sender: FDA-Public Use
  Company Number: None

PATIENT
  Age: 62 Year
  Sex: Female
  Weight: 161.4 kg

DRUGS (26)
  1. ENOXAPARIN SODIUM [Suspect]
     Indication: THROMBOSIS PROPHYLAXIS
     Dosage: 150MG BID SUBCUTANEOUS 9/1/2010 (TWO DOSES), 9/2/2010  (ONE DOSE)
     Route: 058
     Dates: start: 20100901
  2. ENOXAPARIN SODIUM [Suspect]
     Indication: THROMBOSIS PROPHYLAXIS
     Dosage: 150MG BID SUBCUTANEOUS 9/1/2010 (TWO DOSES), 9/2/2010  (ONE DOSE)
     Route: 058
     Dates: start: 20100902
  3. ALPRAZOLAM [Concomitant]
  4. BISACODYL [Concomitant]
  5. DOCUSATE [Concomitant]
  6. HYDROCORTISONE CREAM [Concomitant]
  7. LEVOTHYROXINE [Concomitant]
  8. METOPROLOL XL [Concomitant]
  9. OXYCODONE [Concomitant]
  10. SIMVASTATIN [Concomitant]
  11. TRAZODONE HCL [Concomitant]
  12. FE SULFATE [Concomitant]
  13. LASIX [Concomitant]
  14. DOFETILIDE [Concomitant]
  15. FUROSEMIDE [Concomitant]
  16. LISINOPRIL [Concomitant]
  17. MILK OF MAGNESIA TAB [Concomitant]
  18. MAGNESIUM SULFATE [Concomitant]
  19. DIPHENHYDRAMINE [Concomitant]
  20. NEOSPORIN [Concomitant]
  21. NYSTATIN OINTMENT [Concomitant]
  22. OMEPRAZOLE [Concomitant]
  23. POTASSIUM CHLORIDE [Concomitant]
  24. VALACYCLOVIR [Concomitant]
  25. HEPARIN [Concomitant]
  26. WARFARIN SODIUM [Concomitant]

REACTIONS (2)
  - PRURITUS [None]
  - RASH MACULO-PAPULAR [None]
